FAERS Safety Report 7331338-6 (Version None)
Quarter: 2011Q1

REPORT INFORMATION
  Report Type: 
  Country: None (occurrence: None)
  Receive Date: 20110304
  Receipt Date: 20110217
  Transmission Date: 20110831
  Serious: Yes (Hospitalization, Other)
  Sender: FDA-Public Use
  Company Number: US-BAYER-201020334NA

PATIENT
  Sex: Female

DRUGS (3)
  1. BETASERON [Suspect]
     Indication: MULTIPLE SCLEROSIS
     Dosage: BETAJECT
     Route: 058
     Dates: start: 20091006, end: 20100401
  2. BETASERON [Suspect]
     Dosage: 8 MIU, QOD
  3. BETASERON [Suspect]
     Dosage: BETAJECT
     Route: 058
     Dates: start: 20100427

REACTIONS (7)
  - URINARY TRACT INFECTION [None]
  - OVERWORK [None]
  - MULTIPLE SCLEROSIS RELAPSE [None]
  - VITREOUS FLOATERS [None]
  - DEHYDRATION [None]
  - FATIGUE [None]
  - VITREOUS DETACHMENT [None]
